FAERS Safety Report 9630872 (Version 1)
Quarter: 2013Q4

REPORT INFORMATION
  Report Type: Spontaneous
  Country: US (occurrence: US)
  Receive Date: 20131018
  Receipt Date: 20131018
  Transmission Date: 20140711
  Serious: Yes (Other)
  Sender: FDA-Public Use
  Company Number: US-JNJFOC-20131003715

PATIENT
  Age: 78 Year
  Sex: Female
  Weight: 64.41 kg

DRUGS (4)
  1. EXTRA STRENGTH TYLENOL RAPID RELEASE GELCAPS [Suspect]
     Indication: OSTEOPOROSIS
     Route: 048
  2. EXTRA STRENGTH TYLENOL RAPID RELEASE GELCAPS [Suspect]
     Indication: ARTHRITIS
     Route: 048
  3. XANAX [Concomitant]
     Indication: SEDATIVE THERAPY
     Route: 065
  4. CARDIZEM [Concomitant]
     Indication: BLOOD PRESSURE
     Route: 065

REACTIONS (4)
  - Hepatic lesion [Recovered/Resolved]
  - Ventricular tachycardia [Recovered/Resolved]
  - Overdose [Recovered/Resolved]
  - Off label use [Unknown]
